FAERS Safety Report 17882834 (Version 3)
Quarter: 2020Q2

REPORT INFORMATION
  Report Type: Report from Study
  Country: US (occurrence: US)
  Receive Date: 20200610
  Receipt Date: 20200629
  Transmission Date: 20200714
  Serious: Yes (Death, Hospitalization)
  Sender: FDA-Public Use
  Company Number: US-EXELIXIS-CABO-20030412

PATIENT
  Age: 67 Year
  Sex: Male

DRUGS (17)
  1. NYSTATIN. [Concomitant]
     Active Substance: NYSTATIN
  2. ASPIRIN. [Concomitant]
     Active Substance: ASPIRIN
  3. HYDROXYZINE HCL [Concomitant]
     Active Substance: HYDROXYZINE HYDROCHLORIDE
  4. WELLBUTRIN [Concomitant]
     Active Substance: BUPROPION HYDROCHLORIDE
  5. CHLORTHALIDONE. [Concomitant]
     Active Substance: CHLORTHALIDONE
  6. HYDROCORTISONE. [Concomitant]
     Active Substance: HYDROCORTISONE
  7. CABOMETYX [Suspect]
     Active Substance: CABOZANTINIB S-MALATE
     Dosage: 60 MG, QD
  8. METOPROLOL. [Concomitant]
     Active Substance: METOPROLOL
  9. LYRICA [Concomitant]
     Active Substance: PREGABALIN
  10. LOSARTAN. [Concomitant]
     Active Substance: LOSARTAN
  11. JANUVIA [Concomitant]
     Active Substance: SITAGLIPTIN PHOSPHATE
  12. BASAGLAR [Concomitant]
     Active Substance: INSULIN GLARGINE
  13. METFORMIN [Concomitant]
     Active Substance: METFORMIN HYDROCHLORIDE
  14. PREVACID [Concomitant]
     Active Substance: LANSOPRAZOLE
  15. PRILOSEC [Concomitant]
     Active Substance: OMEPRAZOLE MAGNESIUM
     Dosage: UNK
  16. AMLODIPINE [Concomitant]
     Active Substance: AMLODIPINE BESYLATE
  17. CABOMETYX [Suspect]
     Active Substance: CABOZANTINIB S-MALATE
     Indication: HEPATOCELLULAR CARCINOMA
     Dosage: 60 MG, QD
     Dates: start: 20200507, end: 202005

REACTIONS (10)
  - Blood pressure increased [Unknown]
  - Blood glucose decreased [Unknown]
  - Odynophagia [Unknown]
  - Malignant neoplasm progression [Fatal]
  - Liver function test increased [Unknown]
  - Weight decreased [Unknown]
  - Coronary artery occlusion [Unknown]
  - Anaemia [Unknown]
  - Diarrhoea [Unknown]
  - Wound [Unknown]

NARRATIVE: CASE EVENT DATE: 202005
